FAERS Safety Report 9338037 (Version 2)
Quarter: 2015Q1

REPORT INFORMATION
  Report Type: Report from Study
  Country: US (occurrence: US)
  Receive Date: 20130610
  Receipt Date: 20150323
  Transmission Date: 20150721
  Serious: Yes (Death)
  Sender: FDA-Public Use
  Company Number: US-ROCHE-1234369

PATIENT
  Age: 88 Year
  Sex: Female

DRUGS (9)
  1. BETADINE [Concomitant]
     Active Substance: POVIDONE-IODINE
  2. GENTAMYCIN [Concomitant]
     Active Substance: GENTAMICIN
  3. LUCENTIS [Suspect]
     Active Substance: RANIBIZUMAB
     Indication: AGE-RELATED MACULAR DEGENERATION
     Route: 050
     Dates: start: 20070130
  4. THYROID [Concomitant]
     Active Substance: LEVOTHYROXINE\LIOTHYRONINE
     Route: 065
  5. XYLOCAINE [Concomitant]
     Active Substance: LIDOCAINE HYDROCHLORIDE
     Route: 065
  6. ASPIRIN. [Concomitant]
     Active Substance: ASPIRIN
     Route: 065
  7. PRESERVISION [Concomitant]
     Active Substance: MINERALS\VITAMINS
  8. PROPARACAINE [Concomitant]
     Active Substance: PROPARACAINE
  9. TETRAVISC [Concomitant]
     Active Substance: TETRACAINE HYDROCHLORIDE

REACTIONS (4)
  - Death [Fatal]
  - Eye pain [Unknown]
  - Pneumonia [Recovered/Resolved]
  - Vitreous floaters [Unknown]

NARRATIVE: CASE EVENT DATE: 20111220
